FAERS Safety Report 25906568 (Version 1)
Quarter: 2025Q4

REPORT INFORMATION
  Report Type: Report from Study
  Country: TH (occurrence: TH)
  Receive Date: 20251010
  Receipt Date: 20251010
  Transmission Date: 20260118
  Serious: Yes (Other)
  Sender: ROCHE
  Company Number: TH-ROCHE-10000399103

PATIENT
  Age: 58 Year
  Sex: Female

DRUGS (1)
  1. PHESGO [Suspect]
     Active Substance: HYALURONIDASE-ZZXF\PERTUZUMAB\TRASTUZUMAB
     Indication: Breast cancer metastatic
     Dosage: DRUG PHESGO WITH UNKNOWN THERAPY REGIME.
     Route: 065

REACTIONS (3)
  - Brain oedema [Unknown]
  - Therapeutic product effect delayed [Unknown]
  - Asthenia [Unknown]
